FAERS Safety Report 6334045-1 (Version None)
Quarter: 2009Q3

REPORT INFORMATION
  Report Type: 
  Country: None (occurrence: None)
  Receive Date: 20090829
  Receipt Date: 20090820
  Transmission Date: 20100115
  Serious: Yes (Other)
  Sender: FDA-Public Use
  Company Number: US-ELI_LILLY_AND_COMPANY-US200908005023

PATIENT
  Sex: Female

DRUGS (1)
  1. HUMATROPE [Suspect]
     Indication: HYPOTHALAMO-PITUITARY DISORDER
     Dosage: 0.2 MG, UNKNOWN
     Dates: start: 20060101

REACTIONS (3)
  - DYSSTASIA [None]
  - HYPOTHALAMO-PITUITARY DISORDER [None]
  - MENINGIOMA [None]
